FAERS Safety Report 8218633-3 (Version None)
Quarter: 2012Q1

REPORT INFORMATION
  Report Type: 
  Country: None (occurrence: None)
  Receive Date: 20120319
  Receipt Date: 20120309
  Transmission Date: 20120608
  Serious: Yes (Other)
  Sender: FDA-Public Use
  Company Number: US-SANOFI-AVENTIS-2012SA017032

PATIENT
  Sex: Female

DRUGS (2)
  1. ENOXAPARIN SODIUM [Suspect]
     Indication: MYOCARDIAL INFARCTION
     Route: 065
  2. ANTITHROMBOTIC AGENTS [Concomitant]
     Indication: MYOCARDIAL INFARCTION

REACTIONS (5)
  - COMPARTMENT SYNDROME [None]
  - MUSCLE TIGHTNESS [None]
  - SWELLING [None]
  - PAIN [None]
  - CONTUSION [None]
